FAERS Safety Report 5103653-8 (Version None)
Quarter: 2006Q3

REPORT INFORMATION
  Report Type: 
  Country: None (occurrence: None)
  Receive Date: 20060913
  Receipt Date: 20060905
  Transmission Date: 20061208
  Serious: Yes (Death)
  Sender: FDA-Public Use
  Company Number: US-JNJFOC-20060902135

PATIENT
  Age: 47 Year
  Sex: Male

DRUGS (2)
  1. RISPERIDONE [Suspect]
     Indication: DRUG USE FOR UNKNOWN INDICATION
  2. ETHYLENE GLYCOL [Suspect]
     Indication: DRUG USE FOR UNKNOWN INDICATION

REACTIONS (12)
  - BLOOD PRESSURE DECREASED [None]
  - BODY TEMPERATURE DECREASED [None]
  - CARDIAC DISORDER [None]
  - HAEMODIALYSIS [None]
  - HEART RATE IRREGULAR [None]
  - HYPOTENSION [None]
  - LOSS OF CONSCIOUSNESS [None]
  - METABOLIC ACIDOSIS [None]
  - NERVOUS SYSTEM DISORDER [None]
  - RENAL DISORDER [None]
  - RENAL TUBULAR NECROSIS [None]
  - SUBSTANCE ABUSE [None]
